APPROVED DRUG PRODUCT: VIEKIRA PAK (COPACKAGED)
Active Ingredient: DASABUVIR SODIUM; OMBITASVIR, PARITAPREVIR, RITONAVIR
Strength: EQ 250MG BASE;12.5MG, 75MG, 50MG
Dosage Form/Route: TABLET;ORAL
Application: N206619 | Product #001
Applicant: ABBVIE INC
Approved: Dec 19, 2014 | RLD: Yes | RS: No | Type: DISCN

PATENTS:
Patent 9139536 | Expires: Nov 9, 2028
Patent 8466159 | Expires: Sep 4, 2032
Patent 8501238 | Expires: Dec 19, 2028
Patent 9629841 | Expires: Oct 18, 2033
Patent 8642538 | Expires: Sep 10, 2029
Patent 8680106 | Expires: Sep 4, 2032
Patent 9006387 | Expires: Jun 10, 2030
Patent 8685984 | Expires: Sep 4, 2032
Patent 8492386 | Expires: Sep 4, 2032
Patent 9044480 | Expires: Apr 10, 2031
Patent 8188104 | Expires: May 17, 2029
Patent 10201542 | Expires: Oct 18, 2033
Patent 8420596 | Expires: Apr 10, 2031
Patent 8686026 | Expires: Jun 9, 2031
Patent 8691938 | Expires: Apr 13, 2032